FAERS Safety Report 6931872-4 (Version None)
Quarter: 2010Q3

REPORT INFORMATION
  Report Type: 
  Country: None (occurrence: None)
  Receive Date: 20100819
  Receipt Date: 20100809
  Transmission Date: 20110219
  Serious: Yes (Other)
  Sender: FDA-Public Use
  Company Number: GB-PFIZER INC-2010067846

PATIENT
  Age: 72 Year
  Sex: Female
  Weight: 73 kg

DRUGS (4)
  1. CARDURA [Suspect]
     Dosage: 4 MG, 1X/DAY
     Dates: start: 20100401
  2. OMEPRAZOLE [Concomitant]
     Dosage: UNK
     Dates: start: 20020101
  3. CANDESARTAN CILEXETIL [Concomitant]
     Dosage: 16 MG, 1X/DAY
     Dates: start: 20080101
  4. QUININE SULFATE [Concomitant]
     Dosage: 2 DF, 1X/DAY
     Dates: start: 20070101

REACTIONS (9)
  - DIZZINESS [None]
  - DYSPNOEA [None]
  - GAIT DISTURBANCE [None]
  - HEADACHE [None]
  - MALAISE [None]
  - MEDICATION RESIDUE [None]
  - PALPITATIONS [None]
  - SOMNOLENCE [None]
  - VISION BLURRED [None]
